FAERS Safety Report 10217117 (Version 2)
Quarter: 2015Q4

REPORT INFORMATION
  Report Type: Spontaneous
  Country: US (occurrence: US)
  Receive Date: 20140604
  Receipt Date: 20151012
  Transmission Date: 20160304
  Serious: Yes (Other)
  Sender: FDA-Public Use
  Company Number: US-BAYER-2014-073626

PATIENT
  Age: 34 Year
  Sex: Male

DRUGS (5)
  1. LEVITRA [Suspect]
     Active Substance: VARDENAFIL HYDROCHLORIDE TRIHYDRATE
     Indication: ERECTILE DYSFUNCTION
     Dosage: 2-3 TIMES PER WEEK AS NEEDED
     Route: 048
     Dates: start: 2011
  2. LEVITRA [Suspect]
     Active Substance: VARDENAFIL HYDROCHLORIDE TRIHYDRATE
     Indication: ERECTILE DYSFUNCTION
     Dosage: 2-3 TIMES PER WEEK AS NEEDED
     Route: 048
     Dates: start: 2011
  3. PLAVIX [Concomitant]
     Active Substance: CLOPIDOGREL BISULFATE
     Dosage: UNK
  4. JANUMET [Concomitant]
     Active Substance: METFORMIN HYDROCHLORIDE\SITAGLIPTIN PHOSPHATE
     Dosage: UNK UNK, BID
  5. LIPITOR [Concomitant]
     Active Substance: ATORVASTATIN CALCIUM
     Dosage: UNK

REACTIONS (12)
  - Erectile dysfunction [None]
  - Wrong technique in product usage process [None]
  - Nausea [None]
  - Flatulence [None]
  - Drug ineffective [None]
  - Eye irritation [None]
  - Blood glucose decreased [None]
  - Dyspepsia [None]
  - Blood testosterone abnormal [None]
  - Myocardial infarction [None]
  - Drug effect incomplete [None]
  - Headache [None]

NARRATIVE: CASE EVENT DATE: 201404
